FAERS Safety Report 5659300-X (Version None)
Quarter: 2008Q1

REPORT INFORMATION
  Report Type: 
  Country: None (occurrence: None)
  Receive Date: 20080311
  Receipt Date: 20070625
  Transmission Date: 20080703
  Serious: No
  Sender: FDA-Public Use
  Company Number: US-BAYER-200712019BCC

PATIENT
  Age: 73 Year
  Sex: Female
  Weight: 95 kg

DRUGS (4)
  1. ALEVE [Suspect]
     Indication: BACK PAIN
     Dosage: UNIT DOSE: 220 MG
     Route: 048
     Dates: start: 20070619, end: 20070623
  2. INSULIN [Concomitant]
  3. COZAAR [Concomitant]
  4. DEMADEX [Concomitant]

REACTIONS (2)
  - FLUID RETENTION [None]
  - SOMNOLENCE [None]
